FAERS Safety Report 7488872-8 (Version None)
Quarter: 2011Q2

REPORT INFORMATION
  Report Type: 
  Country: None (occurrence: None)
  Receive Date: 20110518
  Receipt Date: 20110510
  Transmission Date: 20111010
  Serious: Yes (Hospitalization)
  Sender: FDA-Public Use
  Company Number: PHHY2011GB38814

PATIENT
  Age: 70 Year
  Sex: Male

DRUGS (18)
  1. FENOFIBRATE [Concomitant]
  2. GABAPENTIN [Concomitant]
  3. SOLIFENACIN [Concomitant]
  4. CITALOPRAM [Concomitant]
  5. LATANOPROST [Concomitant]
  6. FYBOGEL [Concomitant]
  7. LANSOPRAZOLE [Concomitant]
  8. ACETAMINOPHEN [Concomitant]
  9. TRAMADOL HCL [Suspect]
     Indication: BACK PAIN
     Dosage: 100 MG, PRN
     Route: 048
     Dates: start: 20100610, end: 20100624
  10. ALLOPURINOL [Concomitant]
  11. EZETIMIBE [Concomitant]
  12. RIVASTIGMINE [Concomitant]
  13. BETNOVATE [Concomitant]
  14. CANDESARTAN CILEXETIL [Concomitant]
  15. TRIMETHOPRIM [Concomitant]
  16. CO-CARELDOPA [Concomitant]
  17. OMACOR [Concomitant]
  18. SENNA-MINT WAF [Concomitant]

REACTIONS (4)
  - HALLUCINATION, VISUAL [None]
  - AGGRESSION [None]
  - HOMICIDE [None]
  - HALLUCINATION, AUDITORY [None]
